FAERS Safety Report 6538994-0 (Version None)
Quarter: 2010Q1

REPORT INFORMATION
  Report Type: 
  Country: None (occurrence: None)
  Receive Date: 20100115
  Receipt Date: 20100108
  Transmission Date: 20100710
  Serious: Yes (Hospitalization)
  Sender: FDA-Public Use
  Company Number: AT-B.I. PHARMACEUTICALS,INC./RIDGEFIELD-2009-AP-00390AP

PATIENT
  Sex: Male

DRUGS (4)
  1. VIRAMUNE 200 MG - TABLETTEN [Suspect]
     Indication: ANTIRETROVIRAL THERAPY
     Dosage: 400 RT
     Route: 048
     Dates: start: 20090415
  2. ZIAGEN [Concomitant]
     Indication: HIV INFECTION
     Dosage: 600 NR
     Route: 048
     Dates: start: 20090303
  3. EPIVIR [Concomitant]
     Indication: HIV INFECTION
     Dosage: 2.5 ML
     Route: 048
     Dates: start: 20090303
  4. RALTEGRAVIR [Concomitant]
     Indication: ANTIRETROVIRAL THERAPY
     Dates: start: 20090401, end: 20090401

REACTIONS (6)
  - ENTEROCOCCAL INFECTION [None]
  - GENERAL PHYSICAL CONDITION ABNORMAL [None]
  - HYPERTENSION [None]
  - INFECTION [None]
  - PNEUMOCYSTIS JIROVECI PNEUMONIA [None]
  - PYREXIA [None]
